FAERS Safety Report 16462355 (Version 2)
Quarter: 2019Q2

REPORT INFORMATION
  Report Type: Spontaneous
  Country: US (occurrence: US)
  Receive Date: 20190621
  Receipt Date: 20190624
  Transmission Date: 20190711
  Serious: Yes (Other)
  Sender: FDA-Public Use
  Company Number: US-SA-2019SA163049

PATIENT
  Age: 62 Year
  Sex: Female

DRUGS (1)
  1. TOUJEO [Suspect]
     Active Substance: INSULIN GLARGINE
     Indication: TYPE 2 DIABETES MELLITUS
     Dosage: 100 U, QD
     Route: 065

REACTIONS (13)
  - Blood glucose abnormal [Unknown]
  - Neoplasm malignant [Unknown]
  - Urinary tract infection [Unknown]
  - Cerebral disorder [Unknown]
  - Product dose omission [Unknown]
  - Hip fracture [Unknown]
  - Thrombosis [Unknown]
  - Breast cancer stage II [Unknown]
  - Fall [Unknown]
  - Memory impairment [Unknown]
  - Product packaging quantity issue [Unknown]
  - Visual impairment [Unknown]
  - Wrong technique in product usage process [Unknown]

NARRATIVE: CASE EVENT DATE: 201603
